FAERS Safety Report 8154862 (Version 3)
Quarter: 2012Q4

REPORT INFORMATION
  Report Type: 
  Country: US (occurrence: US)
  Receive Date: 20110923
  Receipt Date: 20121126
  Transmission Date: 20130627
  Serious: Yes (Hospitalization, Other)
  Sender: FDA-Public Use
  Company Number: US-ASTRAZENECA-2011SE56161

PATIENT
  Age: 64 Year
  Sex: Female

DRUGS (1)
  1. ARIMIDEX [Suspect]
     Route: 048

REACTIONS (6)
  - Fall [Unknown]
  - Accident [Unknown]
  - Foot fracture [Unknown]
  - Femur fracture [Unknown]
  - Joint dislocation [Unknown]
  - Upper limb fracture [Unknown]
